FAERS Safety Report 7407539-5 (Version None)
Quarter: 2011Q2

REPORT INFORMATION
  Report Type: 
  Country: None (occurrence: None)
  Receive Date: 20110412
  Receipt Date: 20110330
  Transmission Date: 20111010
  Serious: Yes (Hospitalization)
  Sender: FDA-Public Use
  Company Number: US-BIOGENIDEC-2011BI005152

PATIENT
  Age: 68 Year
  Sex: Male

DRUGS (17)
  1. AVONEX [Suspect]
     Indication: MULTIPLE SCLEROSIS
     Route: 030
     Dates: start: 20000601, end: 20030101
  2. AVONEX [Suspect]
     Route: 030
     Dates: start: 20030101
  3. ONDANSETRON [Concomitant]
     Route: 042
  4. VICODIN [Concomitant]
  5. IBUPROFEN [Concomitant]
     Route: 048
  6. ROSUVASTATIN [Concomitant]
     Indication: HYPERLIPIDAEMIA
     Route: 048
  7. SENNA [Concomitant]
     Route: 048
  8. GLIPIZIDE [Concomitant]
     Indication: TYPE 2 DIABETES MELLITUS
     Route: 048
  9. TRAZODONE [Concomitant]
  10. ALLOPURINOL [Concomitant]
     Route: 048
  11. GEMFIBROZIL [Concomitant]
     Route: 048
  12. ASPIRIN [Concomitant]
     Route: 048
  13. RANITIDINE HCL [Concomitant]
     Route: 048
  14. METOPROLOL TARTRATE [Concomitant]
     Route: 048
  15. THIAMINE [Concomitant]
     Route: 048
  16. ACETAMINOPHEN [Concomitant]
     Route: 048
  17. DOCUSATE [Concomitant]
     Route: 048

REACTIONS (9)
  - NAUSEA [None]
  - DIZZINESS [None]
  - HEADACHE [None]
  - COGNITIVE DISORDER [None]
  - TREMOR [None]
  - FATIGUE [None]
  - ATAXIA [None]
  - PERIPHERAL SENSORY NEUROPATHY [None]
  - LETHARGY [None]
